FAERS Safety Report 4936179-2 (Version None)
Quarter: 2006Q1

REPORT INFORMATION
  Report Type: 
  Country: None (occurrence: None)
  Receive Date: 20060307
  Receipt Date: 20051128
  Transmission Date: 20060701
  Serious: No
  Sender: FDA-Public Use
  Company Number: US-GLAXOSMITHKLINE-A0583667A

PATIENT
  Age: 47 Year
  Sex: Male

DRUGS (13)
  1. REQUIP [Suspect]
     Indication: RESTLESS LEGS SYNDROME
     Dosage: 1.5MG PER DAY
     Route: 048
     Dates: start: 20051111
  2. TRAMADOL HCL [Concomitant]
  3. TRICOR [Concomitant]
  4. LASIX [Concomitant]
  5. ATENOLOL [Concomitant]
  6. ECOTRIN [Concomitant]
  7. ZOCOR [Concomitant]
  8. FIORINAL [Concomitant]
  9. ALPRAZOLAM [Concomitant]
  10. NAPROSYN [Concomitant]
  11. METFORMIN [Concomitant]
  12. GLIPIZIDE [Concomitant]
  13. INSULIN [Concomitant]

REACTIONS (4)
  - DIZZINESS [None]
  - HEADACHE [None]
  - NAUSEA [None]
  - STOMACH DISCOMFORT [None]
